FAERS Safety Report 10408951 (Version 2)
Quarter: 2014Q3

REPORT INFORMATION
  Report Type: Spontaneous
  Country: US (occurrence: US)
  Receive Date: 20140826
  Receipt Date: 20140828
  Transmission Date: 20150326
  Serious: Yes (Other)
  Sender: FDA-Public Use
  Company Number: US-DRREDDYS-USA/USA/14/0042582

PATIENT
  Age: 70 Year
  Sex: Female

DRUGS (3)
  1. KEPPRA [Concomitant]
     Active Substance: LEVETIRACETAM
     Indication: PRODUCT USED FOR UNKNOWN INDICATION
     Route: 065
  2. MEGACE [Concomitant]
     Active Substance: MEGESTROL ACETATE
     Indication: PRODUCT USED FOR UNKNOWN INDICATION
     Route: 065
  3. ZENATANE [Suspect]
     Active Substance: ISOTRETINOIN
     Indication: BRAIN NEOPLASM
     Route: 065
     Dates: start: 20140702, end: 20140806

REACTIONS (1)
  - Disease progression [Unknown]
